FAERS Safety Report 6686295-2 (Version None)
Quarter: 2010Q2

REPORT INFORMATION
  Report Type: 
  Country: None (occurrence: None)
  Receive Date: 20100419
  Receipt Date: 20100407
  Transmission Date: 20101027
  Serious: Yes (Other)
  Sender: FDA-Public Use
  Company Number: US-PFIZER INC-2010045912

PATIENT
  Age: 55 Year
  Sex: Female

DRUGS (4)
  1. ZOLOFT [Suspect]
     Indication: DEPRESSION
     Dosage: 150 MG, 1X/DAY
  2. ZOLOFT [Suspect]
     Indication: OBSESSIVE-COMPULSIVE DISORDER
  3. SERTRALINE HYDROCHLORIDE [Suspect]
     Indication: DEPRESSION
     Dosage: 150 MG, 1X/DAY
     Dates: end: 20100407
  4. SERTRALINE HYDROCHLORIDE [Suspect]
     Indication: OBSESSIVE-COMPULSIVE DISORDER

REACTIONS (5)
  - BLOOD CHOLESTEROL INCREASED [None]
  - BLOOD TRIGLYCERIDES INCREASED [None]
  - LOW DENSITY LIPOPROTEIN INCREASED [None]
  - OBSESSIVE-COMPULSIVE DISORDER [None]
  - OESOPHAGEAL DISORDER [None]
